FAERS Safety Report 24963464 (Version 1)
Quarter: 2025Q1

REPORT INFORMATION
  Report Type: Spontaneous
  Country: US (occurrence: US)
  Receive Date: 20250213
  Receipt Date: 20250213
  Transmission Date: 20250409
  Serious: Yes (Life-Threatening)
  Sender: DR REDDYS
  Company Number: US-DRL-USA-USA/2025/02/002136

PATIENT
  Sex: Male

DRUGS (3)
  1. METFORMIN [Suspect]
     Active Substance: METFORMIN HYDROCHLORIDE
     Indication: Obesity
  2. TOPIRAMATE [Suspect]
     Active Substance: TOPIRAMATE
     Indication: Obesity
  3. TOPIRAMATE [Suspect]
     Active Substance: TOPIRAMATE

REACTIONS (1)
  - Drug ineffective for unapproved indication [Unknown]
